FAERS Safety Report 18472703 (Version 1)
Quarter: 2020Q4

REPORT INFORMATION
  Report Type: Spontaneous
  Country: US (occurrence: US)
  Receive Date: 20201106
  Receipt Date: 20201106
  Transmission Date: 20210114
  Serious: Yes (Life-Threatening, Other)
  Sender: FDA-Public Use
  Company Number: US-PFIZER INC-2020423477

PATIENT
  Age: 61 Year
  Sex: Male

DRUGS (1)
  1. VANCOMYCIN HCL [Suspect]
     Active Substance: VANCOMYCIN HYDROCHLORIDE
     Dosage: 50 MG
     Route: 040

REACTIONS (6)
  - Cardiac output increased [Unknown]
  - Incorrect drug administration rate [Unknown]
  - Blood pressure decreased [Recovered/Resolved]
  - Stroke volume increased [Unknown]
  - Histamine level increased [Unknown]
  - Vascular resistance systemic decreased [Unknown]
